FAERS Safety Report 8574473-7 (Version None)
Quarter: 2012Q3

REPORT INFORMATION
  Report Type: 
  Country: None (occurrence: None)
  Receive Date: 20120806
  Receipt Date: 20120109
  Transmission Date: 20120928
  Serious: No
  Sender: FDA-Public Use
  Company Number: US-ABBOTT-12P-163-0891371-00

PATIENT
  Sex: Female
  Weight: 90.8 kg

DRUGS (6)
  1. DEPAKOTE ER [Suspect]
     Indication: CONVULSION
     Route: 042
     Dates: start: 20111218, end: 20111222
  2. INDURAL [Concomitant]
     Indication: MITRAL VALVE PROLAPSE
     Route: 048
  3. DEPAKOTE ER [Suspect]
     Dosage: ONE 500MG TAB AND ONE 250MG TAB
     Route: 048
     Dates: start: 20111222, end: 20120107
  4. PHENOBARBITAL TAB [Concomitant]
     Indication: CONVULSION
     Route: 048
     Dates: start: 19700101
  5. DIAZEPAM [Concomitant]
     Indication: CONVULSION
     Route: 048
     Dates: start: 19700101
  6. PROPRANOLOL [Concomitant]
     Indication: ARRHYTHMIA
     Route: 048

REACTIONS (15)
  - DRUG WITHDRAWAL SYNDROME [None]
  - APPETITE DISORDER [None]
  - VAGINAL DISCHARGE [None]
  - VOMITING [None]
  - ANXIETY [None]
  - DRY EYE [None]
  - MYALGIA [None]
  - AGITATION [None]
  - FEELING DRUNK [None]
  - VISION BLURRED [None]
  - INCREASED TENDENCY TO BRUISE [None]
  - NAUSEA [None]
  - GAIT DISTURBANCE [None]
  - POOR QUALITY SLEEP [None]
  - TACHYCARDIA [None]
